FAERS Safety Report 5374659-9 (Version None)
Quarter: 2007Q2

REPORT INFORMATION
  Report Type: 
  Country: None (occurrence: None)
  Receive Date: 20070629
  Receipt Date: 20070621
  Transmission Date: 20071010
  Serious: Yes (Other)
  Sender: FDA-Public Use
  Company Number: BR-AVENTIS-200715648GDDC

PATIENT
  Sex: Female
  Weight: 55 kg

DRUGS (6)
  1. LANTUS [Suspect]
     Route: 058
     Dates: start: 20061201
  2. LANTUS [Suspect]
     Dosage: DOSE: 4 OR 6 UNITS
     Route: 058
  3. LANTUS [Suspect]
     Dosage: DOSE: 4 OR 6 UNITS
     Route: 058
     Dates: start: 20070621
  4. LASIX [Concomitant]
     Dosage: DOSE QUANTITY: 3
     Route: 048
     Dates: start: 20061201
  5. ATENSINA [Concomitant]
     Indication: BLOOD PRESSURE
     Dosage: DOSE: 0.5 OR 1
     Route: 048
     Dates: start: 20061201
  6. NIFEDIPINE [Concomitant]
     Indication: BLOOD PRESSURE
     Dosage: DOSE QUANTITY: 1
     Route: 048
     Dates: start: 20061201

REACTIONS (4)
  - CONDITION AGGRAVATED [None]
  - HYPERGLYCAEMIA [None]
  - HYPERTENSION [None]
  - HYPOGLYCAEMIA [None]
